FAERS Safety Report 21714390 (Version 2)
Quarter: 2023Q1

REPORT INFORMATION
  Report Type: Spontaneous
  Country: GB (occurrence: GB)
  Receive Date: 20221212
  Receipt Date: 20230109
  Transmission Date: 20230418
  Serious: Yes (Death, Hospitalization, Other)
  Sender: FDA-Public Use
  Company Number: None

PATIENT
  Age: 61 Year
  Sex: Female

DRUGS (8)
  1. METHOTREXATE SODIUM [Suspect]
     Active Substance: METHOTREXATE SODIUM
     Indication: Rheumatoid arthritis
     Dosage: 22.5 MG
     Route: 058
     Dates: start: 2008
  2. CELEBREX [Concomitant]
     Active Substance: CELECOXIB
  3. METFORMIN [Concomitant]
     Active Substance: METFORMIN HYDROCHLORIDE
  4. DIHYDROCODEINE [Concomitant]
     Active Substance: DIHYDROCODEINE
  5. OMEPRAZOLE [Concomitant]
     Active Substance: OMEPRAZOLE
  6. FERROUS FUMARATE [Concomitant]
     Active Substance: FERROUS FUMARATE
  7. SITAGLIPTIN [Concomitant]
     Active Substance: SITAGLIPTIN
  8. ATORVASTATIN [Concomitant]
     Active Substance: ATORVASTATIN

REACTIONS (4)
  - Neutropenic sepsis [Fatal]
  - Photosensitivity reaction [Unknown]
  - Burn infection [Unknown]
  - Sunburn [Unknown]

NARRATIVE: CASE EVENT DATE: 20220524
